FAERS Safety Report 6062357-8 (Version None)
Quarter: 2009Q1

REPORT INFORMATION
  Report Type: 
  Country: None (occurrence: None)
  Receive Date: 20090202
  Receipt Date: 20090202
  Transmission Date: 20090719
  Serious: Yes (Life-Threatening)
  Sender: FDA-Public Use
  Company Number: None

PATIENT
  Age: 39 Year
  Sex: Male
  Weight: 80 kg

DRUGS (4)
  1. VOLUVEN [Suspect]
     Indication: FLUID REPLACEMENT
     Dosage: INTRAVENOUS
     Route: 042
  2. ISOFLURANE [Concomitant]
  3. PROPOFOL [Concomitant]
  4. ROCURONIUM BROMIDE [Concomitant]

REACTIONS (3)
  - ACUTE RESPIRATORY DISTRESS SYNDROME [None]
  - FLUID OVERLOAD [None]
  - RESPIRATORY DISORDER [None]
